FAERS Safety Report 8062515-7 (Version None)
Quarter: 2012Q1

REPORT INFORMATION
  Report Type: 
  Country: None (occurrence: None)
  Receive Date: 20120123
  Receipt Date: 20120120
  Transmission Date: 20120608
  Serious: Yes (Other)
  Sender: FDA-Public Use
  Company Number: US-PFIZER INC-2012017372

PATIENT
  Sex: Female
  Weight: 47.166 kg

DRUGS (12)
  1. XANAX [Suspect]
     Indication: MOOD SWINGS
  2. NORCO [Concomitant]
     Indication: BACK PAIN
     Dosage: 7.5 UNITS,AS NEEDED
  3. VALIUM [Concomitant]
     Indication: SLEEP DISORDER
  4. XANAX [Suspect]
     Indication: DEPRESSION
     Dosage: 1 MG, 3X/DAY
     Dates: start: 20111201
  5. VALIUM [Concomitant]
     Indication: PANIC ATTACK
     Dosage: 30 MG, DAILY AT BED TIME
  6. VALIUM [Concomitant]
     Indication: ANXIETY
  7. XANAX [Suspect]
     Indication: AGITATION
  8. CHANTIX [Suspect]
     Indication: SMOKING CESSATION THERAPY
     Dosage: 0.5 MG, DAILY
     Dates: start: 20120120
  9. XANAX [Suspect]
     Indication: ANXIETY
  10. XANAX [Suspect]
     Indication: PANIC ATTACK
  11. XANAX [Suspect]
     Indication: ANGER
  12. XANAX [Suspect]
     Indication: SLEEP DISORDER

REACTIONS (4)
  - PNEUMONIA [None]
  - PULMONARY OEDEMA [None]
  - RHINITIS [None]
  - HEADACHE [None]
